FAERS Safety Report 9191165 (Version 1)
Quarter: 2013Q1

REPORT INFORMATION
  Report Type: Spontaneous
  Country: US (occurrence: US)
  Receive Date: 20130326
  Receipt Date: 20130326
  Transmission Date: 20140127
  Serious: Yes (Hospitalization)
  Sender: FDA-Public Use
  Company Number: US-BAYER-2013-035915

PATIENT
  Age: 45 Year
  Sex: Female
  Weight: 113 kg

DRUGS (16)
  1. GIANVI [Suspect]
  2. YAZ [Suspect]
     Indication: MENORRHAGIA
  3. YAZ [Suspect]
     Indication: NEOPLASM PROPHYLAXIS
  4. METFORMIN [Concomitant]
     Indication: BLOOD GLUCOSE INCREASED
     Dosage: 1500 MG, QD
  5. METOPROLOL [Concomitant]
     Indication: HYPERTENSION
     Dosage: 50 MG, BID
  6. SPIRONOLACTONE [Concomitant]
     Dosage: 50 MG, UNK
  7. WELLBUTRIN SR [Concomitant]
     Indication: DEPRESSION
     Dosage: 200 MG, UNK
  8. WELLBUTRIN SR [Concomitant]
     Indication: ANXIETY
  9. MULTIVITAMIN [Concomitant]
     Dosage: UNK, QD
  10. CALCIUM [Concomitant]
  11. CLONAZEPAM [Concomitant]
     Dosage: 0.5 MG, Q6H PRN
  12. MAXZIDE [Concomitant]
     Dosage: 37.5/25 1 QD
  13. AMBIEN [Concomitant]
     Dosage: 5 MG, QHS PRN
  14. OMEGA 3 FISH OIL [Concomitant]
  15. POTASSIUM [Concomitant]
     Dosage: UNK, QD
  16. LOSARTAN [Concomitant]

REACTIONS (1)
  - Deep vein thrombosis [None]
